FAERS Safety Report 9932833 (Version 1)
Quarter: 2014Q1

REPORT INFORMATION
  Report Type: Spontaneous
  Country: US (occurrence: US)
  Receive Date: 20140228
  Receipt Date: 20140228
  Transmission Date: 20141002
  Serious: No
  Sender: FDA-Public Use
  Company Number: US-GLAXOSMITHKLINE-A1051456A

PATIENT
  Sex: 0

DRUGS (4)
  1. IMITREX [Suspect]
     Indication: CLUSTER HEADACHE
     Dosage: 6MG UNKNOWN
     Route: 058
     Dates: start: 20100314
  2. LIDOCAINE [Concomitant]
     Indication: HEADACHE
     Route: 045
  3. PROPRANOLOL [Concomitant]
     Dosage: 80MG TWICE PER DAY
  4. AMBIEN [Concomitant]
     Dosage: 5MG AT NIGHT
     Route: 048

REACTIONS (1)
  - Overdose [Unknown]
